FAERS Safety Report 15682218 (Version 6)
Quarter: 2021Q1

REPORT INFORMATION
  Report Type: Spontaneous
  Country: US (occurrence: US)
  Receive Date: 20181203
  Receipt Date: 20210315
  Transmission Date: 20210419
  Serious: No
  Sender: FDA-Public Use
  Company Number: US-PFIZER INC-2018427293

PATIENT
  Age: 92 Year
  Sex: Female
  Weight: 86.17 kg

DRUGS (4)
  1. LYRICA [Suspect]
     Active Substance: PREGABALIN
     Dosage: 200 MG, DAILY (1 CAPSULE OF 50 MG EVERY MORNING, 3 CAPSULES EVERY NIGHT)
     Route: 048
     Dates: start: 20190311
  2. LYRICA [Suspect]
     Active Substance: PREGABALIN
     Indication: LUMBAR SPINAL STENOSIS
     Dosage: 150 MG, DAILY (1 CAPSULE OF 50 MG IN THE MORNING AND 2 CAPSULES EVERY NIGHT AT BEDTIME)
     Route: 048
  3. LYRICA [Suspect]
     Active Substance: PREGABALIN
     Indication: NEUROPATHY PERIPHERAL
     Dosage: 200 MG, DAILY (1 CAPSULE OF 50 MG IN THE MORNING AND 3 CAPSULES AT NIGHT)
     Route: 048
  4. LYRICA [Suspect]
     Active Substance: PREGABALIN
     Dosage: 200 MG, DAILY (1 CAPSULE OF 50 MG EVERY MORNING, 1 CAPSULE OF 150 MG EVERY NIGHT)
     Route: 048

REACTIONS (2)
  - Pain in extremity [Not Recovered/Not Resolved]
  - Peripheral swelling [Not Recovered/Not Resolved]
